FAERS Safety Report 12511283 (Version 1)
Quarter: 2016Q2

REPORT INFORMATION
  Report Type: Spontaneous
  Country: US (occurrence: US)
  Receive Date: 20160629
  Receipt Date: 20160629
  Transmission Date: 20160815
  Serious: Yes (Other)
  Sender: FDA-Public Use
  Company Number: US-ASTRAZENECA-2016SE68759

PATIENT
  Sex: Female
  Weight: 106.1 kg

DRUGS (11)
  1. AFRIN [Suspect]
     Active Substance: OXYMETAZOLINE
     Route: 045
  2. PULMICORT RESPULES [Suspect]
     Active Substance: BUDESONIDE
     Indication: EMPHYSEMA
     Dosage: TWICE DAILY
     Route: 055
  3. OTC RHINOCORT ALLERGY SPRAY [Concomitant]
     Indication: ASTHMA
     Dosage: 2 SPRAYS PER NOSTRIL TWICE DAILY
     Route: 045
     Dates: start: 2016
  4. OTC RHINOCORT ALLERGY SPRAY [Concomitant]
     Indication: EMPHYSEMA
     Dosage: 2 SPRAYS PER NOSTRIL TWICE DAILY
     Route: 045
     Dates: start: 2016
  5. RHINOCORT AQUA [Suspect]
     Active Substance: BUDESONIDE
     Indication: ASTHMA
     Dosage: 2 SPRAYS PER NOSTRIL TWICE DAILY
     Route: 045
  6. RHINOCORT AQUA [Suspect]
     Active Substance: BUDESONIDE
     Indication: MULTIPLE ALLERGIES
     Dosage: 2 SPRAYS PER NOSTRIL TWICE DAILY
     Route: 045
  7. PULMICORT RESPULES [Suspect]
     Active Substance: BUDESONIDE
     Indication: ASTHMA
     Dosage: TWICE DAILY
     Route: 055
  8. FLONASE [Suspect]
     Active Substance: FLUTICASONE PROPIONATE
     Route: 045
  9. UNSPECIFIED [Concomitant]
     Active Substance: UNSPECIFIED INGREDIENT
  10. RHINOCORT AQUA [Suspect]
     Active Substance: BUDESONIDE
     Indication: EMPHYSEMA
     Dosage: 2 SPRAYS PER NOSTRIL TWICE DAILY
     Route: 045
  11. OTC RHINOCORT ALLERGY SPRAY [Concomitant]
     Indication: MULTIPLE ALLERGIES
     Dosage: 2 SPRAYS PER NOSTRIL TWICE DAILY
     Route: 045
     Dates: start: 2016

REACTIONS (6)
  - Off label use [Unknown]
  - Drug dose omission [Unknown]
  - Anaphylactic reaction [Unknown]
  - Product use issue [Unknown]
  - Dyspnoea [Unknown]
  - Limb discomfort [Unknown]
